FAERS Safety Report 24965458 (Version 1)
Quarter: 2025Q1

REPORT INFORMATION
  Report Type: Spontaneous
  Country: ES (occurrence: ES)
  Receive Date: 20250213
  Receipt Date: 20250213
  Transmission Date: 20250408
  Serious: Yes (Hospitalization, Other)
  Sender: ALEXION PHARMACEUTICALS
  Company Number: ES-ASTRAZENECA-202502GLO008064ES

PATIENT
  Age: 76 Year
  Weight: 68 kg

DRUGS (15)
  1. QUETIAPINE [Suspect]
     Active Substance: QUETIAPINE
     Indication: Mixed anxiety and depressive disorder
  2. QUETIAPINE [Suspect]
     Active Substance: QUETIAPINE
     Dosage: 200 MILLIGRAM, Q8H
  3. QUETIAPINE [Suspect]
     Active Substance: QUETIAPINE
     Dosage: 150 MILLIGRAM, QD
  4. QUETIAPINE [Suspect]
     Active Substance: QUETIAPINE
     Dosage: 200 MILLIGRAM, QD
  5. ALPRAZOLAM [Suspect]
     Active Substance: ALPRAZOLAM
     Indication: Mixed anxiety and depressive disorder
  6. DONEPEZIL [Concomitant]
     Active Substance: DONEPEZIL
     Route: 065
  7. MEMANTINE [Concomitant]
     Active Substance: MEMANTINE
     Route: 065
  8. TRAZODONE [Concomitant]
     Active Substance: TRAZODONE HYDROCHLORIDE
     Route: 065
  9. HALOPERIDOL [Concomitant]
     Active Substance: HALOPERIDOL
     Route: 065
  10. ATORVASTATIN [Concomitant]
     Active Substance: ATORVASTATIN
     Route: 065
  11. GABAPENTIN [Concomitant]
     Active Substance: GABAPENTIN
     Dosage: 300 MILLIGRAM, BID
     Route: 065
  12. GABAPENTIN [Concomitant]
     Active Substance: GABAPENTIN
     Dosage: 300 UNK, Q8H
     Route: 065
  13. GABAPENTIN [Concomitant]
     Active Substance: GABAPENTIN
     Dosage: 300 UNK, BID, WHICH WE WILL INCREASE
     Route: 065
  14. SERTRALINE [Concomitant]
     Active Substance: SERTRALINE HYDROCHLORIDE
     Dosage: 25 MILLIGRAM, QD
     Route: 065
  15. CLONAZEPAM [Concomitant]
     Active Substance: CLONAZEPAM
     Route: 065

REACTIONS (4)
  - Restlessness [Recovering/Resolving]
  - Gait disturbance [Recovering/Resolving]
  - Depressed level of consciousness [Recovering/Resolving]
  - Off label use [Unknown]
